FAERS Safety Report 5139149-7 (Version None)
Quarter: 2006Q4

REPORT INFORMATION
  Report Type: 
  Country: None (occurrence: None)
  Receive Date: 20061030
  Receipt Date: 20060629
  Transmission Date: 20070319
  Serious: No
  Sender: FDA-Public Use
  Company Number: US-GLAXOSMITHKLINE-A0610772A

PATIENT
  Age: 68 Year
  Sex: Female

DRUGS (4)
  1. ADVAIR HFA [Suspect]
     Indication: ASTHMA
     Dosage: 1PUFF TWICE PER DAY
     Route: 055
     Dates: start: 20040101, end: 20060601
  2. VENTOLIN [Concomitant]
  3. COZAAR [Concomitant]
  4. ACCOLATE [Concomitant]

REACTIONS (3)
  - CHEST DISCOMFORT [None]
  - COUGH [None]
  - DYSPNOEA [None]
